FAERS Safety Report 8139482-0 (Version None)
Quarter: 2012Q1

REPORT INFORMATION
  Report Type: 
  Country: None (occurrence: None)
  Receive Date: 20120215
  Receipt Date: 20120214
  Transmission Date: 20120608
  Serious: Yes (Other)
  Sender: FDA-Public Use
  Company Number: US-PFIZER INC-2011252466

PATIENT
  Sex: Male
  Weight: 103.86 kg

DRUGS (19)
  1. CIPROFLOXACIN HYDROCHLORIDE [Suspect]
     Indication: URINARY TRACT INFECTION
     Dosage: 500 MG, 2X/DAY
     Route: 048
     Dates: start: 20110117, end: 20110124
  2. COUMADIN [Concomitant]
     Indication: ATRIAL FIBRILLATION
     Dosage: 75 MG, 1X/DAY
     Route: 048
     Dates: start: 19700101
  3. ATRIPLA [Concomitant]
     Indication: HIV INFECTION
     Dosage: 1 TAB, 1X/DAY
     Route: 048
     Dates: start: 20070101
  4. METOPROLOL [Concomitant]
     Indication: HYPERTENSION
     Dosage: 25 MG, 1X/DAY
     Route: 048
     Dates: start: 19800101
  5. POTASSIUM CHLORIDE [Concomitant]
     Indication: HYPERTENSION
     Dosage: 20MEQ, 1X/DAY
     Route: 048
     Dates: start: 20070101
  6. PREGABALIN [Suspect]
     Indication: NEURALGIA
     Dosage: UNK, 2X/DAY
     Route: 048
     Dates: start: 20100930, end: 20110118
  7. PLACEBO [Suspect]
     Dosage: UNK, 2X/DAY
     Route: 048
     Dates: start: 20110119, end: 20110125
  8. TESSALON [Suspect]
     Indication: RESPIRATORY TRACT IRRITATION
     Dosage: 200 MG, 3X/DAY
     Route: 048
     Dates: start: 20101030, end: 20101209
  9. BACTRIM DS [Suspect]
     Indication: URINARY TRACT INFECTION
     Dosage: 1 TAB, 2X/DAY
     Route: 048
     Dates: start: 20110124
  10. BLINDED NO SUBJECT DRUG [Suspect]
     Dosage: UNK, 2X/DAY
     Route: 048
     Dates: start: 20110119, end: 20110125
  11. PREGABALIN [Suspect]
     Dosage: UNK, 2X/DAY
     Route: 048
     Dates: start: 20110119, end: 20110125
  12. DOXYCYCLINE HYCLATE [Suspect]
     Indication: RESPIRATORY TRACT IRRITATION
     Dosage: 100 MG, 2X/DAY
     Route: 048
     Dates: start: 20101130, end: 20101209
  13. CEPHALEXIN [Suspect]
     Indication: RESPIRATORY TRACT IRRITATION
     Dosage: 500 MG, 3X/DAY
     Route: 048
     Dates: start: 20101023, end: 20101129
  14. CITALOPRAM HYDROBROMIDE [Concomitant]
     Indication: DEPRESSION
     Dosage: 20 MG, 1X/DAY
     Route: 048
     Dates: start: 20040101
  15. CITALOPRAM HYDROBROMIDE [Concomitant]
     Indication: ANXIETY
  16. DIGOXIN [Concomitant]
     Indication: ATRIAL FIBRILLATION
     Dosage: 0.125 MG, 1X/DAY
     Route: 048
     Dates: start: 19700101
  17. FUROSEMIDE [Concomitant]
     Indication: HYPERTENSION
     Dosage: 40 MG, 1X/DAY
     Route: 048
     Dates: start: 20080101
  18. PLACEBO [Suspect]
     Indication: NEURALGIA
     Dosage: UNK, 2X/DAY
     Route: 048
     Dates: start: 20100930, end: 20110118
  19. BLINDED NO SUBJECT DRUG [Suspect]
     Indication: NEURALGIA
     Dosage: UNK, 2X/DAY
     Route: 048
     Dates: start: 20100930, end: 20110118

REACTIONS (2)
  - LIVER FUNCTION TEST ABNORMAL [None]
  - GALLBLADDER DISORDER [None]
